FAERS Safety Report 21501046 (Version 3)
Quarter: 2022Q4

REPORT INFORMATION
  Report Type: Report from Study
  Country: US (occurrence: US)
  Receive Date: 20221025
  Receipt Date: 20221130
  Transmission Date: 20230113
  Serious: Yes (Hospitalization)
  Sender: FDA-Public Use
  Company Number: US-ABBVIE-22K-163-4471241-00

PATIENT
  Sex: Female

DRUGS (4)
  1. HUMIRA [Suspect]
     Active Substance: ADALIMUMAB
     Indication: Colitis ulcerative
     Dosage: STRENGTH: 40 MILLIGRAM?DRUG START DATE: 2022
     Route: 058
  2. HUMIRA [Suspect]
     Active Substance: ADALIMUMAB
     Dosage: DAY 15?STRENGTH: 40 MILLIGRAM
     Route: 058
     Dates: start: 20220202, end: 20220202
  3. HUMIRA [Suspect]
     Active Substance: ADALIMUMAB
     Dosage: DAY 1?STRENGTH: 40 MILLIGRAM
     Route: 058
     Dates: start: 20220119, end: 20220119
  4. HUMIRA [Suspect]
     Active Substance: ADALIMUMAB
     Indication: Colitis ulcerative
     Dosage: STRENGTH: 40 MG
     Route: 058
     Dates: start: 20211222

REACTIONS (12)
  - Hospitalisation [Recovered/Resolved]
  - Depressed mood [Unknown]
  - Asthenia [Unknown]
  - Insomnia [Unknown]
  - Injection site bruising [Recovering/Resolving]
  - Colitis ulcerative [Recovering/Resolving]
  - Sciatica [Unknown]
  - Infection parasitic [Unknown]
  - Decreased appetite [Unknown]
  - Drug ineffective [Unknown]
  - Injection site pain [Unknown]
  - Frequent bowel movements [Unknown]

NARRATIVE: CASE EVENT DATE: 20220101
